FAERS Safety Report 7362258-9 (Version None)
Quarter: 2011Q1

REPORT INFORMATION
  Report Type: 
  Country: None (occurrence: None)
  Receive Date: 20110318
  Receipt Date: 20110314
  Transmission Date: 20110831
  Serious: Yes (Life-Threatening, Other)
  Sender: FDA-Public Use
  Company Number: PHHY2011BR21653

PATIENT
  Sex: Female

DRUGS (1)
  1. DIOVAN [Suspect]
     Indication: BLOOD PRESSURE
     Dosage: 160 MG, 1 TABLET A DAY

REACTIONS (10)
  - BLOOD GLUCOSE INCREASED [None]
  - ARTHRITIS [None]
  - DIABETES MELLITUS [None]
  - BRAIN NEOPLASM [None]
  - HYPERTENSION [None]
  - DEAFNESS [None]
  - GAIT DISTURBANCE [None]
  - OSTEOARTHRITIS [None]
  - COMA [None]
  - CONVULSION [None]
